FAERS Safety Report 19316808 (Version 1)
Quarter: 2021Q2

REPORT INFORMATION
  Report Type: Spontaneous
  Country: US (occurrence: US)
  Receive Date: 20210527
  Receipt Date: 20210527
  Transmission Date: 20210717
  Serious: Yes (Other)
  Sender: FDA-Public Use
  Company Number: US-GW PHARMA-202105USGW02550

PATIENT

DRUGS (2)
  1. EPIDIOLEX [Suspect]
     Active Substance: CANNABIDIOL
     Dosage: 5.26 MG/KG, 100 MILLIGRAM, BID (IF MORE SEIZURES DOSE CAN BE INCREASED TO 2 ML BID FOR A WEEK AND TH
     Route: 048
  2. EPIDIOLEX [Suspect]
     Active Substance: CANNABIDIOL
     Indication: SEIZURE
     Dosage: 2.63 MG/KG, 50 MILLIGRAM, BID
     Route: 048

REACTIONS (1)
  - Seizure [Unknown]
